FAERS Safety Report 23387483 (Version 8)
Quarter: 2025Q1

REPORT INFORMATION
  Report Type: Report from Study
  Country: US (occurrence: US)
  Receive Date: 20240110
  Receipt Date: 20250320
  Transmission Date: 20250408
  Serious: Yes (Other)
  Sender: PFIZER
  Company Number: US-PFIZER INC-PV202400001653

PATIENT
  Age: 88 Year
  Sex: Male

DRUGS (19)
  1. VYNDAMAX [Suspect]
     Active Substance: TAFAMIDIS
     Indication: Cardiomyopathy
     Dosage: 61 MG, 1X/DAY
     Route: 048
     Dates: start: 20231130
  2. VYNDAMAX [Suspect]
     Active Substance: TAFAMIDIS
     Dosage: 61 MG, 1X/DAY
     Route: 048
  3. ELIQUIS [Concomitant]
     Active Substance: APIXABAN
  4. AMIODARONE [Concomitant]
     Active Substance: AMIODARONE
  5. BETHANECHOL [Concomitant]
     Active Substance: BETHANECHOL
  6. FAMOTIDINE [Concomitant]
     Active Substance: FAMOTIDINE
  7. GABAPENTIN [Concomitant]
     Active Substance: GABAPENTIN
  8. JARDIANCE [Concomitant]
     Active Substance: EMPAGLIFLOZIN
  9. LEVOTHYROXINE [Concomitant]
     Active Substance: LEVOTHYROXINE
  10. LOTEPREDNOL [Concomitant]
     Active Substance: LOTEPREDNOL
  11. METFORMIN [Concomitant]
     Active Substance: METFORMIN HYDROCHLORIDE
  12. MIDODRINE [Concomitant]
     Active Substance: MIDODRINE
  13. PANTOPRAZOLE [Concomitant]
     Active Substance: PANTOPRAZOLE
  14. POTASSIUM CHLORIDE [Concomitant]
     Active Substance: POTASSIUM CHLORIDE
  15. PREDNISONE [Concomitant]
     Active Substance: PREDNISONE
  16. REPATHA [Concomitant]
     Active Substance: EVOLOCUMAB
  17. TAMSULOSIN [Concomitant]
     Active Substance: TAMSULOSIN
  18. VITAMIN D [Concomitant]
     Active Substance: VITAMIN D NOS
  19. FUROSEMIDE [Concomitant]
     Active Substance: FUROSEMIDE

REACTIONS (6)
  - Hypotension [Not Recovered/Not Resolved]
  - Diarrhoea [Recovered/Resolved]
  - Dizziness [Not Recovered/Not Resolved]
  - Product dose omission in error [Unknown]
  - Product dose omission issue [Unknown]
  - Dizziness postural [Not Recovered/Not Resolved]

NARRATIVE: CASE EVENT DATE: 20231201
